FAERS Safety Report 9393180 (Version 1)
Quarter: 2013Q3

REPORT INFORMATION
  Report Type: Spontaneous
  Country: US (occurrence: US)
  Receive Date: 20130710
  Receipt Date: 20130710
  Transmission Date: 20140515
  Serious: No
  Sender: FDA-Public Use
  Company Number: US-BAYER-2013-081718

PATIENT
  Age: 59 Year
  Sex: Male

DRUGS (24)
  1. LEVITRA [Suspect]
     Indication: ERECTILE DYSFUNCTION
     Dosage: 20 MG, EVERY 2 DAYS
     Route: 048
     Dates: start: 20130612, end: 20130629
  2. LEVEMIR [Concomitant]
  3. NOVOLOG [Concomitant]
  4. METFORMIN [Concomitant]
  5. GABAPENTIN [Concomitant]
  6. LISINOPRIL [Concomitant]
  7. LIPITOR [Concomitant]
  8. ASPIRIN [Concomitant]
  9. PERCOCET [Concomitant]
  10. REMINARON [Concomitant]
  11. WELLBUTRIN [Concomitant]
  12. VALIUM [Concomitant]
  13. NEXIUM [Concomitant]
  14. ZANTAC [Concomitant]
  15. ZYRTEC [Concomitant]
  16. IMODIUM [LOPERAMIDE HYDROCHLORIDE] [Concomitant]
  17. CALCIUM [Concomitant]
  18. VITAMIN C [Concomitant]
  19. FERROUS SULFATE [Concomitant]
  20. MUCINEX [Concomitant]
  21. MAGNESIUM OXIDE [Concomitant]
  22. SONATA [Concomitant]
  23. TRAZODONE [Concomitant]
  24. SYNTHROID [Concomitant]

REACTIONS (1)
  - Drug ineffective [Not Recovered/Not Resolved]
